APPROVED DRUG PRODUCT: VALPROIC ACID
Active Ingredient: VALPROIC ACID
Strength: 250MG
Dosage Form/Route: CAPSULE;ORAL
Application: A207611 | Product #001
Applicant: HIBROW HEALTHCARE PRIVATE LTD
Approved: Aug 5, 2019 | RLD: No | RS: No | Type: DISCN